APPROVED DRUG PRODUCT: PENNSAID
Active Ingredient: DICLOFENAC SODIUM
Strength: 2% **Federal Register determination that product was not discontinued or withdrawn for safety or effectiveness reasons**
Dosage Form/Route: SOLUTION;TOPICAL
Application: N204623 | Product #001
Applicant: HORIZON THERAPEUTICS IRELAND DAC
Approved: Jan 16, 2014 | RLD: Yes | RS: No | Type: DISCN

PATENTS:
Patent 8741956 | Expires: Jul 10, 2029
Patent 8546450 | Expires: Aug 9, 2030
Patent 8618164 | Expires: Jul 10, 2029
Patent 9132110 | Expires: Oct 17, 2027
Patent 9168305 | Expires: Oct 17, 2027
Patent 9066913 | Expires: Oct 17, 2027
Patent 9339551 | Expires: Oct 17, 2027
Patent 9370501 | Expires: Jul 10, 2029
Patent 8217078 | Expires: Jul 10, 2029
Patent 8252838 | Expires: Apr 21, 2028
Patent 8546450 | Expires: Aug 9, 2030
Patent 9375412 | Expires: Jul 10, 2029
Patent 9220784 | Expires: Oct 17, 2027
Patent 9415029 | Expires: Jul 10, 2029
Patent 9339552 | Expires: Oct 17, 2027
Patent 9539335 | Expires: Oct 17, 2027
Patent 8563613 | Expires: Oct 17, 2027
Patent 8871809 | Expires: Oct 17, 2027
Patent 9101591 | Expires: Oct 17, 2027
Patent 9168304 | Expires: Oct 17, 2027